FAERS Safety Report 18589962 (Version 1)
Quarter: 2020Q4

REPORT INFORMATION
  Report Type: Spontaneous
  Country: US (occurrence: US)
  Receive Date: 20201207
  Receipt Date: 20201207
  Transmission Date: 20210114
  Serious: Yes (Other)
  Sender: FDA-Public Use
  Company Number: None

PATIENT
  Age: 76 Year
  Weight: 88.65 kg

DRUGS (22)
  1. OXYCODONE HYDROCHLORIDE. [Concomitant]
     Active Substance: OXYCODONE HYDROCHLORIDE
  2. ELIQUIS [Concomitant]
     Active Substance: APIXABAN
  3. CARVEDILOL. [Concomitant]
     Active Substance: CARVEDILOL
  4. FLUTICASONE PROPIONATE. [Concomitant]
     Active Substance: FLUTICASONE PROPIONATE
  5. METFORMIN HCL [Concomitant]
     Active Substance: METFORMIN HYDROCHLORIDE
  6. MIRTAZAPINE. [Concomitant]
     Active Substance: MIRTAZAPINE
  7. ATORVASTATIN CALCIUM. [Concomitant]
     Active Substance: ATORVASTATIN CALCIUM
  8. BENZONATATE. [Concomitant]
     Active Substance: BENZONATATE
  9. GUAIFENESIN AC [Concomitant]
     Active Substance: CODEINE PHOSPHATE\GUAIFENESIN
  10. ENOXAPARIN SODIUM. [Concomitant]
     Active Substance: ENOXAPARIN SODIUM
  11. BENAZEPRIL HCL [Concomitant]
     Active Substance: BENAZEPRIL HYDROCHLORIDE
  12. GABAPENTIN. [Concomitant]
     Active Substance: GABAPENTIN
  13. ALBUTEROL SULFATE HFA [Concomitant]
     Active Substance: ALBUTEROL SULFATE
  14. DICYCLOMINE HCL [Concomitant]
     Active Substance: DICYCLOMINE HYDROCHLORIDE
  15. OLANZAPINE. [Concomitant]
     Active Substance: OLANZAPINE
  16. HYCAMTIN [Suspect]
     Active Substance: TOPOTECAN HYDROCHLORIDE
     Indication: LUNG CARCINOMA CELL TYPE UNSPECIFIED STAGE 0
     Route: 048
     Dates: start: 20201116
  17. AMLODIPINE BESYLATE. [Concomitant]
     Active Substance: AMLODIPINE BESYLATE
  18. LIDOCAINE-PRILOCAINE [Concomitant]
     Active Substance: LIDOCAINE\PRILOCAINE
  19. METOCLOPRAMIDE HCL [Concomitant]
     Active Substance: METOCLOPRAMIDE HYDROCHLORIDE
  20. AZITHROMYCIN ANHYDROUS. [Concomitant]
     Active Substance: AZITHROMYCIN ANHYDROUS
  21. DOCETAXEL. [Concomitant]
     Active Substance: DOCETAXEL
  22. DOXYCYCLINE MONOHYDRATE [Concomitant]
     Active Substance: DOXYCYCLINE

REACTIONS (3)
  - Nausea [None]
  - Decreased appetite [None]
  - Fatigue [None]

NARRATIVE: CASE EVENT DATE: 20201207
